FAERS Safety Report 6662598-2 (Version None)
Quarter: 2010Q1

REPORT INFORMATION
  Report Type: 
  Country: None (occurrence: None)
  Receive Date: 20100329
  Receipt Date: 20100312
  Transmission Date: 20100710
  Serious: Yes (Hospitalization)
  Sender: FDA-Public Use
  Company Number: 2010SCPR000446

PATIENT
  Age: 67 Year
  Sex: Male

DRUGS (11)
  1. IBUPROFEN [Suspect]
     Dates: start: 20091211
  2. RIVAROXABAN [Suspect]
     Indication: KNEE ARTHROPLASTY
     Dates: start: 20091210
  3. RIVAROXABAN [Suspect]
     Indication: THROMBOSIS PROPHYLAXIS
     Dates: start: 20091210
  4. NOVALGIN (METAMIZOLE SODIUM MONOHYDRATE) [Concomitant]
  5. PALLADONE [Concomitant]
  6. PALLADONE [Concomitant]
  7. PERFALGAN (PARACETAMOL) [Concomitant]
  8. DIPIDOLOR (PIRITRAMIDE) [Concomitant]
  9. RAMIPRIL PLUS (HYDROCHLOROTHIAZIDE, RAMIPRIL) [Concomitant]
  10. TARGIN (NALOXONE HYDROCHLORIDE, OXYCODONE HYDROCHLORIDE) [Concomitant]
  11. TARGIN (NALOXONE HYDROCHLORIDE, OXYCODONE HYDROCHLORIDE) [Concomitant]

REACTIONS (4)
  - DRUG INTERACTION [None]
  - HAEMATOMA INFECTION [None]
  - HAEMOGLOBIN ABNORMAL [None]
  - POST PROCEDURAL HAEMATOMA [None]
